FAERS Safety Report 4265559-6 (Version None)
Quarter: 2004Q1

REPORT INFORMATION
  Report Type: 
  Country: None (occurrence: None)
  Receive Date: 20040106
  Receipt Date: 20031224
  Transmission Date: 20041129
  Serious: Yes (Life-Threatening, Hospitalization)
  Sender: FDA-Public Use
  Company Number: 03P-161-0243567-00

PATIENT
  Sex: Female
  Weight: 68 kg

DRUGS (9)
  1. TARKA [Suspect]
     Indication: HYPERTENSION
     Dosage: 2 MG, 1 IN 1 D, PER ORAL
     Route: 048
     Dates: start: 20031201, end: 20031202
  2. CAPTOPRIL [Concomitant]
  3. BENZYDAMINE HYDROCHLORIDE [Concomitant]
  4. BENZYLAMINE HCL [Concomitant]
  5. CALCIUM ASCORBATE [Concomitant]
  6. AMPICILLIN SODIUM/SULBACTAM SODIUM [Concomitant]
  7. AMPICILLIN [Concomitant]
  8. SULBACTAM SODIUM [Concomitant]
  9. LIDOCAINE [Concomitant]

REACTIONS (6)
  - ATRIOVENTRICULAR BLOCK [None]
  - COLD SWEAT [None]
  - DIZZINESS [None]
  - GINGIVAL BLEEDING [None]
  - HYPERTENSION [None]
  - NAUSEA [None]
